FAERS Safety Report 7305255-1 (Version None)
Quarter: 2011Q1

REPORT INFORMATION
  Report Type: 
  Country: None (occurrence: None)
  Receive Date: 20110222
  Receipt Date: 20110217
  Transmission Date: 20110831
  Serious: Yes (Hospitalization, Other)
  Sender: FDA-Public Use
  Company Number: US-PFIZER INC-2010144960

PATIENT
  Sex: Female

DRUGS (8)
  1. ADDERALL 10 [Concomitant]
     Indication: ATTENTION DEFICIT/HYPERACTIVITY DISORDER
     Dosage: UNK
     Dates: start: 20060101
  2. TOPAMAX [Concomitant]
     Indication: DEPRESSION
     Dosage: UNK
     Dates: start: 20070101
  3. CYMBALTA [Concomitant]
     Indication: DEPRESSION
     Dosage: UNK
     Dates: start: 20070101
  4. CHANTIX [Suspect]
     Dosage: CONTINUING MONTH PACK
     Dates: start: 20081114, end: 20090125
  5. TOPAMAX [Concomitant]
     Indication: BIPOLAR DISORDER
  6. CHANTIX [Suspect]
     Indication: SMOKING CESSATION THERAPY
     Dosage: STARTING MOTH PACK
     Dates: start: 20081013, end: 20081113
  7. COPAXONE [Concomitant]
     Indication: MULTIPLE SCLEROSIS
     Dosage: UNK
     Dates: start: 20030101
  8. ALBUTEROL [Concomitant]
     Indication: CHRONIC OBSTRUCTIVE PULMONARY DISEASE
     Dosage: UNK
     Dates: start: 20060101

REACTIONS (7)
  - BIPOLAR DISORDER [None]
  - DEPRESSION [None]
  - SUICIDAL IDEATION [None]
  - PARANOIA [None]
  - AGGRESSION [None]
  - ANXIETY [None]
  - ANGER [None]
